FAERS Safety Report 4802596-4 (Version None)
Quarter: 2005Q4

REPORT INFORMATION
  Report Type: 
  Country: None (occurrence: None)
  Receive Date: 20051014
  Receipt Date: 20050506
  Transmission Date: 20060501
  Serious: Yes (Other)
  Sender: FDA-Public Use
  Company Number: 2005037722

PATIENT
  Age: 30 Year
  Sex: Female

DRUGS (5)
  1. NEURONTIN [Suspect]
     Indication: FIBROMYALGIA
     Dosage: 1200 MG (600 MG, 2 IN 1 D), ORAL
     Route: 048
     Dates: start: 20050101
  2. NEURONTIN [Suspect]
     Indication: MOOD SWINGS
     Dosage: 1200 MG (600 MG, 2 IN 1 D), ORAL
     Route: 048
     Dates: start: 20050101
  3. NEURONTIN [Suspect]
     Indication: PAIN
     Dosage: 1200 MG (600 MG, 2 IN 1 D), ORAL
     Route: 048
     Dates: start: 20050101
  4. VERAPAMIL [Concomitant]
  5. TRAZODONE HCL [Concomitant]

REACTIONS (2)
  - NEPHROLITHIASIS [None]
  - RENAL PAIN [None]
